FAERS Safety Report 5504004-7 (Version None)
Quarter: 2007Q4

REPORT INFORMATION
  Report Type: 
  Country: None (occurrence: None)
  Receive Date: 20071101
  Receipt Date: 20071022
  Transmission Date: 20080405
  Serious: Yes (Hospitalization)
  Sender: FDA-Public Use
  Company Number: US-JNJFOC-20071005751

PATIENT
  Sex: Female
  Weight: 97.52 kg

DRUGS (9)
  1. DURAGESIC-100 [Suspect]
     Indication: PAIN
     Route: 062
  2. FLEXERIL [Suspect]
     Indication: MUSCLE RELAXANT THERAPY
     Route: 048
  3. FLEXERIL [Suspect]
     Indication: PAIN
     Route: 048
  4. NEURONTIN [Concomitant]
     Indication: NEUROPATHY
     Route: 048
  5. ATICAN [Concomitant]
     Indication: HYPERTENSION
     Route: 048
  6. TOPROL-XL [Concomitant]
     Route: 048
  7. NEXIUM [Concomitant]
     Indication: GASTROOESOPHAGEAL REFLUX DISEASE
     Route: 048
  8. ULTRAM [Concomitant]
     Indication: PAIN
     Route: 048
  9. PERCOCET [Concomitant]
     Indication: PAIN
     Route: 065

REACTIONS (14)
  - ARRHYTHMIA [None]
  - CYSTITIS [None]
  - DIVERTICULUM [None]
  - HYPERHIDROSIS [None]
  - IRON DEFICIENCY [None]
  - KIDNEY INFECTION [None]
  - LICHEN SCLEROSUS [None]
  - LOSS OF CONSCIOUSNESS [None]
  - NAUSEA [None]
  - PANCREATITIS [None]
  - SINUS DISORDER [None]
  - VOMITING [None]
  - WEIGHT INCREASED [None]
  - WRONG TECHNIQUE IN DRUG USAGE PROCESS [None]
